FAERS Safety Report 5406761-7 (Version None)
Quarter: 2007Q3

REPORT INFORMATION
  Report Type: 
  Country: None (occurrence: None)
  Receive Date: 20070807
  Receipt Date: 20070731
  Transmission Date: 20080115
  Serious: Yes (Hospitalization)
  Sender: FDA-Public Use
  Company Number: PHBS2007JP12225

PATIENT
  Age: 65 Year
  Sex: Male

DRUGS (2)
  1. PAROXETINE [Suspect]
     Indication: DEPRESSION
     Route: 065
  2. TOFRANIL [Suspect]
     Indication: DEPRESSION
     Route: 048

REACTIONS (15)
  - ALTERED STATE OF CONSCIOUSNESS [None]
  - APATHY [None]
  - ASTHENIA [None]
  - BLOOD ANTIDIURETIC HORMONE DECREASED [None]
  - BLOOD CORTICOTROPHIN DECREASED [None]
  - BLOOD OSMOLARITY DECREASED [None]
  - BLOOD SODIUM DECREASED [None]
  - CEREBRAL HAEMORRHAGE [None]
  - CEREBRAL INFARCTION [None]
  - FALL [None]
  - HEMIPLEGIA [None]
  - HYPONATRAEMIA [None]
  - INAPPROPRIATE ANTIDIURETIC HORMONE SECRETION [None]
  - URINE OSMOLARITY DECREASED [None]
  - URINE SODIUM DECREASED [None]
